FAERS Safety Report 8585326-2 (Version None)
Quarter: 2012Q3

REPORT INFORMATION
  Report Type: 
  Country: None (occurrence: None)
  Receive Date: 20120810
  Receipt Date: 20120809
  Transmission Date: 20120928
  Serious: Yes (Other)
  Sender: FDA-Public Use
  Company Number: IT-PFIZER INC-2012195215

PATIENT
  Age: 25 Year
  Sex: Female

DRUGS (1)
  1. XANAX [Suspect]
     Dosage: TOTAL OF 10 TABLETS OF 0.25 MG
     Route: 048
     Dates: start: 20120801, end: 20120801

REACTIONS (2)
  - INTENTIONAL OVERDOSE [None]
  - BRADYPHRENIA [None]
